FAERS Safety Report 6692047-X (Version None)
Quarter: 2010Q2

REPORT INFORMATION
  Report Type: 
  Country: None (occurrence: None)
  Receive Date: 20100422
  Receipt Date: 20100419
  Transmission Date: 20101027
  Serious: Yes (Hospitalization)
  Sender: FDA-Public Use
  Company Number: US-BRISTOL-MYERS SQUIBB COMPANY-15015597

PATIENT
  Age: 11 Year
  Sex: Male

DRUGS (7)
  1. ABILIFY [Suspect]
     Indication: AFFECTIVE DISORDER
     Route: 048
     Dates: start: 20100113, end: 20100121
  2. ABILIFY [Suspect]
     Indication: REACTIVE ATTACHMENT DISORDER OF INFANCY OR EARLY CHILDHOOD
     Route: 048
     Dates: start: 20100113, end: 20100121
  3. ABILIFY [Suspect]
     Indication: ASPERGER'S DISORDER
     Route: 048
     Dates: start: 20100113, end: 20100121
  4. LEXAPRO [Suspect]
     Dates: start: 20090623
  5. SEROQUEL [Suspect]
     Dates: start: 20070427
  6. DAYTRANA [Suspect]
     Dosage: PATCH
     Dates: start: 20070427
  7. CLONIDINE [Suspect]
     Dates: start: 20070427

REACTIONS (1)
  - OESOPHAGEAL SPASM [None]
